FAERS Safety Report 20135380 (Version 4)
Quarter: 2021Q4

REPORT INFORMATION
  Report Type: Spontaneous
  Country: HU (occurrence: HU)
  Receive Date: 20211201
  Receipt Date: 20211224
  Transmission Date: 20220303
  Serious: Yes (Other)
  Sender: FDA-Public Use
  Company Number: HU-NOVARTISPH-NVSC2021HU270640

PATIENT
  Age: 11 Month
  Sex: Female
  Weight: 8 kg

DRUGS (7)
  1. ONASEMNOGENE ABEPARVOVEC [Suspect]
     Active Substance: ONASEMNOGENE ABEPARVOVEC
     Indication: Spinal muscular atrophy
     Dosage: 44.2 ML
     Route: 065
     Dates: start: 20210806
  2. ONASEMNOGENE ABEPARVOVEC [Suspect]
     Active Substance: ONASEMNOGENE ABEPARVOVEC
     Dosage: 5.5 ML (2X5.5 ML)
     Route: 065
  3. ONASEMNOGENE ABEPARVOVEC [Suspect]
     Active Substance: ONASEMNOGENE ABEPARVOVEC
     Dosage: 8.3 ML (4X8.3 ML)
     Route: 065
  4. PREDNISOLONE [Concomitant]
     Active Substance: PREDNISOLONE
     Indication: Product used for unknown indication
     Dosage: 1 MG/KG, QD
     Route: 054
     Dates: start: 20210805, end: 20210930
  5. FAMOTIDINE [Concomitant]
     Active Substance: FAMOTIDINE
     Indication: Product used for unknown indication
     Dosage: 4 MG, BID (VIA NG TUBE)
     Route: 065
     Dates: start: 20210805, end: 20210930
  6. VIGANTOL [Concomitant]
     Indication: Product used for unknown indication
     Dosage: 2 DRP (VIA NG TUBE)
     Route: 065
  7. NUSINERSEN [Concomitant]
     Active Substance: NUSINERSEN
     Indication: Product used for unknown indication
     Dosage: RECEIVED 4 DOSES
     Route: 037

REACTIONS (9)
  - Platelet count decreased [Recovered/Resolved]
  - Pyrexia [Recovered/Resolved]
  - Pyrexia [Recovered/Resolved]
  - Blood creatine phosphokinase MB increased [Not Recovered/Not Resolved]
  - Hepatosplenomegaly [Unknown]
  - Increased bronchial secretion [Not Recovered/Not Resolved]
  - Salivary hypersecretion [Not Recovered/Not Resolved]
  - Aspartate aminotransferase increased [Recovering/Resolving]
  - Alanine aminotransferase increased [Unknown]

NARRATIVE: CASE EVENT DATE: 20210807
